FAERS Safety Report 7724361-0 (Version None)
Quarter: 2011Q3

REPORT INFORMATION
  Report Type: 
  Country: None (occurrence: None)
  Receive Date: 20110901
  Receipt Date: 20110823
  Transmission Date: 20111222
  Serious: Yes (Hospitalization, Disabling)
  Sender: FDA-Public Use
  Company Number: BR-ASTRAZENECA-2011SE50780

PATIENT
  Age: 65 Year
  Sex: Female
  Weight: 66 kg

DRUGS (4)
  1. CALCIUM CARBONATE [Concomitant]
     Indication: OSTEOPOROSIS
     Route: 048
  2. DAFORIN [Concomitant]
     Indication: DEPRESSION
     Route: 048
     Dates: start: 20090101
  3. OLCADIL [Concomitant]
     Indication: INSOMNIA
     Dosage: PRN
     Route: 048
  4. ATACAND HCT [Suspect]
     Indication: HYPERTENSION
     Dosage: 16/12.5 MG
     Route: 048
     Dates: start: 20050101, end: 20110601

REACTIONS (6)
  - FALL [None]
  - DRUG INEFFECTIVE [None]
  - DEPRESSION [None]
  - BLOOD PRESSURE INCREASED [None]
  - TIBIA FRACTURE [None]
  - WEIGHT INCREASED [None]
